FAERS Safety Report 17302269 (Version 1)
Quarter: 2020Q1

REPORT INFORMATION
  Report Type: Spontaneous
  Country: SI (occurrence: SI)
  Receive Date: 20200122
  Receipt Date: 20200122
  Transmission Date: 20200409
  Serious: Yes (Other)
  Sender: FDA-Public Use
  Company Number: SI-SA-2020SA012803

PATIENT
  Age: 69 Year
  Sex: Male

DRUGS (5)
  1. REGLAN [Concomitant]
     Active Substance: METOCLOPRAMIDE HYDROCHLORIDE
     Dosage: ASNECESSARY
  2. NOLPAZA [Concomitant]
     Active Substance: PANTOPRAZOLE SODIUM
  3. PRENESSA [Concomitant]
     Active Substance: PERINDOPRIL
  4. SELDIAR [Concomitant]
     Dosage: ASNECESSARY
  5. ZALTRAP [Suspect]
     Active Substance: ZIV-AFLIBERCEPT
     Indication: COLON CANCER
     Dosage: 4 MG/KG (STRENGTH: 25 MG/ML)
     Route: 042
     Dates: start: 20191108, end: 20191129

REACTIONS (4)
  - Thrombocytopenia [Recovered/Resolved]
  - Rash [Recovered/Resolved]
  - Paronychia [Recovered/Resolved]
  - Proteinuria [Recovered/Resolved]

NARRATIVE: CASE EVENT DATE: 20191129
